FAERS Safety Report 17024273 (Version 2)
Quarter: 2025Q4

REPORT INFORMATION
  Report Type: Spontaneous
  Country: EU (occurrence: EU)
  Receive Date: 20191113
  Receipt Date: 20251226
  Transmission Date: 20260118
  Serious: Yes (Hospitalization, Other)
  Sender: AUROBINDO
  Company Number: EU-AFSSAPS-DJ20191269

PATIENT
  Age: 71 Year
  Sex: Male
  Weight: 71 kg

DRUGS (3)
  1. PANTOPRAZOLE [Suspect]
     Active Substance: PANTOPRAZOLE
     Indication: Implantable defibrillator insertion
     Dosage: 40 MILLIGRAM, ONCE A DAY
     Route: 061
     Dates: start: 201903
  2. PRAVASTATIN SODIUM [Suspect]
     Active Substance: PRAVASTATIN SODIUM
     Indication: Implantable defibrillator insertion
     Dosage: 40 MILLIGRAM, ONCE A DAY
     Route: 061
     Dates: start: 201903
  3. ASPIRIN LYSINE [Suspect]
     Active Substance: ASPIRIN LYSINE
     Indication: Implantable defibrillator insertion
     Dosage: 250 MILLIGRAM, ONCE A DAY
     Route: 061

REACTIONS (2)
  - Eosinophilic pneumonia [Not Recovered/Not Resolved]
  - Eosinophilia [Not Recovered/Not Resolved]

NARRATIVE: CASE EVENT DATE: 20190901
